FAERS Safety Report 21029339 (Version 6)
Quarter: 2022Q4

REPORT INFORMATION
  Report Type: Report from Study
  Country: US (occurrence: US)
  Receive Date: 20220630
  Receipt Date: 20221020
  Transmission Date: 20230113
  Serious: No
  Sender: FDA-Public Use
  Company Number: US-NOVARTISTESTPH-NVSC2022US149611

PATIENT
  Age: 50 Year
  Sex: Male

DRUGS (3)
  1. KESIMPTA [Suspect]
     Active Substance: OFATUMUMAB
     Indication: Multiple sclerosis
     Dosage: 20 MG, QMO (INJECT 1 PEN 20 MG SUBCUTANEOUSLY MONTHLY STARTING AT WEEK 4 AS DIRECTED)
     Route: 058
     Dates: start: 20220626
  2. PRAVASTATIN SODIUM [Concomitant]
     Active Substance: PRAVASTATIN SODIUM
     Indication: Product used for unknown indication
     Dosage: UNK
     Route: 065
  3. LYRICA [Concomitant]
     Active Substance: PREGABALIN
     Indication: Product used for unknown indication
     Dosage: UNK
     Route: 065

REACTIONS (10)
  - Chest pain [Recovered/Resolved]
  - Hypoaesthesia [Unknown]
  - Dyskinesia [Unknown]
  - Discomfort [Unknown]
  - Abdominal discomfort [Unknown]
  - Influenza like illness [Recovered/Resolved]
  - Dyspnoea [Unknown]
  - Chest discomfort [Recovered/Resolved]
  - Flushing [Recovered/Resolved]
  - Fatigue [Unknown]

NARRATIVE: CASE EVENT DATE: 20220626
